FAERS Safety Report 7212618-1 (Version None)
Quarter: 2011Q1

REPORT INFORMATION
  Report Type: 
  Country: None (occurrence: None)
  Receive Date: 20110106
  Receipt Date: 20101214
  Transmission Date: 20110831
  Serious: No
  Sender: FDA-Public Use
  Company Number: US-B.I. PHARMACEUTICALS,INC./RIDGEFIELD-2010-BP-14568BP

PATIENT
  Sex: Female

DRUGS (6)
  1. SYNTHROID [Concomitant]
     Indication: HYPOTHYROIDISM
  2. DIOVAN [Concomitant]
     Indication: HYPERTENSION
  3. POTASSIUM [Concomitant]
     Indication: MUSCLE SPASMS
  4. PRADAXA [Suspect]
     Dosage: 300 MG
     Route: 048
     Dates: start: 20101209, end: 20101213
  5. ARICEPT [Concomitant]
     Indication: MEMORY IMPAIRMENT
  6. MECLIZINE [Concomitant]
     Indication: DIZZINESS

REACTIONS (5)
  - FATIGUE [None]
  - DIZZINESS [None]
  - ASTHENIA [None]
  - CHEST PAIN [None]
  - HEART RATE INCREASED [None]
